FAERS Safety Report 6417842-3 (Version None)
Quarter: 2009Q4

REPORT INFORMATION
  Report Type: 
  Country: None (occurrence: None)
  Receive Date: 20091026
  Receipt Date: 20091013
  Transmission Date: 20100525
  Serious: Yes (Hospitalization)
  Sender: FDA-Public Use
  Company Number: ADR37932009

PATIENT
  Age: 63 Year
  Sex: Male

DRUGS (13)
  1. SIMVASTATIN [Suspect]
     Dosage: 40 MG ORAL USE
     Route: 048
     Dates: start: 20080120, end: 20080228
  2. ADCAL-D3 [Concomitant]
  3. ADIZEM [Concomitant]
  4. ASPIRIN [Concomitant]
  5. BENDROFLUMETHIAZIDE [Concomitant]
  6. CARBOCISTEINE [Concomitant]
  7. CO-CODAMOL [Concomitant]
  8. OMEPRAZOLE [Concomitant]
  9. RAMIPRIL [Concomitant]
  10. ALBUTEROL [Concomitant]
  11. SERETIDE [Concomitant]
  12. THEOPHYLLINE [Concomitant]
  13. TIOTROPIUM BROMIDE [Concomitant]

REACTIONS (3)
  - BLOOD CREATINE PHOSPHOKINASE INCREASED [None]
  - CHEST PAIN [None]
  - MYALGIA [None]
